FAERS Safety Report 13579260 (Version 1)
Quarter: 2017Q2

REPORT INFORMATION
  Report Type: Report from Study
  Country: US (occurrence: US)
  Receive Date: 20170525
  Receipt Date: 20170525
  Transmission Date: 20170830
  Serious: Yes (Hospitalization, Other)
  Sender: FDA-Public Use
  Company Number: US-BRISTOL-MYERS SQUIBB COMPANY-BMS-2017-042839

PATIENT
  Age: 46 Year
  Sex: Female
  Weight: 90.5 kg

DRUGS (1)
  1. NIVOLUMAB [Suspect]
     Active Substance: NIVOLUMAB
     Indication: GLIOMA
     Dosage: 480 MG, Q4WK
     Route: 042
     Dates: start: 20161005, end: 20170411

REACTIONS (5)
  - Vomiting [Unknown]
  - Headache [Unknown]
  - Wound infection [Unknown]
  - Confusional state [Unknown]
  - Nausea [Unknown]
